FAERS Safety Report 12970693 (Version 2)
Quarter: 2017Q3

REPORT INFORMATION
  Report Type: Report from Study
  Country: US (occurrence: US)
  Receive Date: 20161123
  Receipt Date: 20170705
  Transmission Date: 20171127
  Serious: Yes (Life-Threatening, Hospitalization)
  Sender: FDA-Public Use
  Company Number: US-BIOGEN-2013BI058273

PATIENT
  Age: 33 Year
  Sex: Female

DRUGS (9)
  1. LEVAQUIN [Concomitant]
     Active Substance: LEVOFLOXACIN
     Indication: PRODUCT USED FOR UNKNOWN INDICATION
     Route: 065
     Dates: start: 20130531
  2. MINOCYCLINE HCL [Concomitant]
     Active Substance: MINOCYCLINE HYDROCHLORIDE
     Indication: PRODUCT USED FOR UNKNOWN INDICATION
     Route: 065
     Dates: start: 20130531
  3. PENICILLIN G POTASSIUM. [Concomitant]
     Active Substance: PENICILLIN G POTASSIUM
     Indication: PRODUCT USED FOR UNKNOWN INDICATION
     Route: 065
     Dates: start: 20130531
  4. AVONEX [Suspect]
     Active Substance: INTERFERON BETA-1A
     Indication: MULTIPLE SCLEROSIS
     Route: 030
     Dates: start: 20130408
  5. AVONEX [Suspect]
     Active Substance: INTERFERON BETA-1A
     Route: 030
     Dates: start: 20130625
  6. TETRACYCLINE [Concomitant]
     Active Substance: TETRACYCLINE
     Indication: PRODUCT USED FOR UNKNOWN INDICATION
     Route: 065
     Dates: start: 20130531
  7. AMBIEN [Concomitant]
     Active Substance: ZOLPIDEM TARTRATE
     Indication: INSOMNIA
     Route: 048
     Dates: start: 20130616
  8. CYMBALTA [Concomitant]
     Active Substance: DULOXETINE HYDROCHLORIDE
     Indication: PRODUCT USED FOR UNKNOWN INDICATION
     Route: 065
     Dates: start: 20130531
  9. ZOFRAN [Concomitant]
     Active Substance: ONDANSETRON HYDROCHLORIDE
     Indication: NAUSEA
     Route: 048
     Dates: start: 20130622

REACTIONS (17)
  - Superior vena cava syndrome [Recovered/Resolved]
  - Medical induction of coma [Recovered/Resolved]
  - Rash erythematous [Not Recovered/Not Resolved]
  - Blister [Not Recovered/Not Resolved]
  - Skin irritation [Recovered/Resolved]
  - Urticaria [Recovered/Resolved]
  - Loss of consciousness [Recovered/Resolved]
  - Hyperaesthesia [Not Recovered/Not Resolved]
  - Rash papular [Not Recovered/Not Resolved]
  - Complication associated with device [Recovered/Resolved]
  - Dizziness [Not Recovered/Not Resolved]
  - Weight increased [Recovered/Resolved]
  - Obstructive airways disorder [Recovered/Resolved]
  - Skin fissures [Recovered/Resolved]
  - Amnesia [Not Recovered/Not Resolved]
  - Pruritus [Not Recovered/Not Resolved]
  - Insomnia [Recovered/Resolved]

NARRATIVE: CASE EVENT DATE: 20130612
